FAERS Safety Report 8886978 (Version 2)
Quarter: 2012Q4

REPORT INFORMATION
  Report Type: 
  Country: AU (occurrence: AU)
  Receive Date: 20121105
  Receipt Date: 20121108
  Transmission Date: 20130627
  Serious: Yes (Other)
  Sender: FDA-Public Use
  Company Number: PHHY2012AU095218

PATIENT
  Age: 33 Year
  Sex: Male

DRUGS (1)
  1. CLOZARIL [Suspect]
     Dosage: 400 mg, daily
     Route: 048
     Dates: start: 20031119, end: 20121024

REACTIONS (5)
  - Alcoholic pancreatitis [Unknown]
  - Cardiomyopathy [Unknown]
  - Agranulocytosis [Unknown]
  - Neutrophil count decreased [Recovered/Resolved]
  - White blood cell count decreased [Recovered/Resolved]
